FAERS Safety Report 16661514 (Version 1)
Quarter: 2019Q3

REPORT INFORMATION
  Report Type: Spontaneous
  Country: US (occurrence: US)
  Receive Date: 20190802
  Receipt Date: 20190802
  Transmission Date: 20191004
  Serious: No
  Sender: FDA-Public Use
  Company Number: US-ENDO PHARMACEUTICALS INC-2019-016489

PATIENT
  Age: 60 Year
  Sex: Male

DRUGS (3)
  1. TESTOPEL [Suspect]
     Active Substance: TESTOSTERONE
     Indication: BLOOD TESTOSTERONE DECREASED
     Dosage: 10 PELLETS (750 MG), EVERY 3 MONTHS
     Route: 058
     Dates: start: 20181002
  2. TESTOPEL [Suspect]
     Active Substance: TESTOSTERONE
     Dosage: 10 PELLETS (750 MG), EVERY 3 MONTHS
     Route: 058
     Dates: start: 20190103
  3. TESTOPEL [Suspect]
     Active Substance: TESTOSTERONE
     Dosage: 10 PELLETS (750 MG), EVERY 3 MONTHS
     Route: 058

REACTIONS (3)
  - Prescribed overdose [Not Recovered/Not Resolved]
  - Asthenia [Not Recovered/Not Resolved]
  - Device extrusion [Recovered/Resolved]

NARRATIVE: CASE EVENT DATE: 201812
